FAERS Safety Report 8303892 (Version 5)
Quarter: 2013Q1

REPORT INFORMATION
  Report Type: Spontaneous
  Country: US (occurrence: US)
  Receive Date: 20111221
  Receipt Date: 20130213
  Transmission Date: 20140127
  Serious: Yes (Hospitalization, Other)
  Sender: FDA-Public Use
  Company Number: US-ELI_LILLY_AND_COMPANY-US201104000891

PATIENT
  Age: 73 None
  Sex: Female
  Weight: 114.29 kg

DRUGS (11)
  1. FORTEO [Suspect]
     Indication: OSTEOPOROSIS
     Dosage: 20 UG, QD
     Route: 065
     Dates: start: 20110126
  2. FORTEO [Suspect]
     Dosage: 20 UG, QD
     Route: 065
  3. FORTEO [Suspect]
     Dosage: 20 UG, QD
     Route: 065
  4. FORTEO [Suspect]
     Dosage: 20 UG, QD
     Route: 065
  5. FORTEO [Suspect]
     Dosage: 20 UG, QD
     Dates: end: 201208
  6. METFORMIN [Concomitant]
  7. GLYBURIDE [Concomitant]
  8. SIMVASTATIN [Concomitant]
  9. VITAMIN D NOS [Concomitant]
     Dosage: 50000 U, UNKNOWN
  10. LISINOPRIL [Concomitant]
  11. TYLENOL /00020001/ [Concomitant]
     Dosage: UNK, PRN

REACTIONS (17)
  - Myocardial infarction [Unknown]
  - Gastric haemorrhage [Unknown]
  - Dyspnoea [Unknown]
  - Cholecystitis [Recovering/Resolving]
  - Cholelithiasis [Recovering/Resolving]
  - Cataract [Recovering/Resolving]
  - Back pain [Recovered/Resolved]
  - Back pain [Not Recovered/Not Resolved]
  - Groin pain [Recovered/Resolved]
  - Groin pain [Unknown]
  - Fatigue [Unknown]
  - Injection site haemorrhage [Unknown]
  - Arthralgia [Recovered/Resolved]
  - Arthralgia [Not Recovered/Not Resolved]
  - Injection site pain [Unknown]
  - Gait disturbance [Unknown]
  - Haematocrit decreased [Unknown]
